FAERS Safety Report 5763998-5 (Version None)
Quarter: 2008Q2

REPORT INFORMATION
  Report Type: 
  Country: None (occurrence: None)
  Receive Date: 20080606
  Receipt Date: 20080606
  Transmission Date: 20081010
  Serious: Yes (Other)
  Sender: FDA-Public Use
  Company Number: None

PATIENT
  Sex: Female
  Weight: 49.6235 kg

DRUGS (3)
  1. FLUOXETINE [Suspect]
     Indication: OBSESSIVE-COMPULSIVE DISORDER
     Dosage: 20MG ONCE DAILY ORAL
     Route: 048
     Dates: start: 20080204
  2. CYCLESSA [Concomitant]
  3. PREVACID [Concomitant]

REACTIONS (1)
  - OESOPHAGITIS [None]
